FAERS Safety Report 8186785-X (Version None)
Quarter: 2012Q1

REPORT INFORMATION
  Report Type: 
  Country: None (occurrence: None)
  Receive Date: 20120306
  Receipt Date: 20120306
  Transmission Date: 20120608
  Serious: Yes (Death)
  Sender: FDA-Public Use
  Company Number: None

PATIENT
  Age: 63 Year
  Sex: Male
  Weight: 92.986 kg

DRUGS (1)
  1. GLIADEL [Suspect]
     Indication: GLIOBLASTOMA MULTIFORME
     Dates: start: 20110819, end: 20110819

REACTIONS (7)
  - EATING DISORDER [None]
  - INFECTION [None]
  - WOUND SECRETION [None]
  - PNEUMONIA ASPIRATION [None]
  - CNS VENTRICULITIS [None]
  - INFLAMMATION [None]
  - MENINGITIS [None]
